FAERS Safety Report 8350087-9 (Version None)
Quarter: 2012Q2

REPORT INFORMATION
  Report Type: 
  Country: None (occurrence: None)
  Receive Date: 20120510
  Receipt Date: 20120509
  Transmission Date: 20120825
  Serious: No
  Sender: FDA-Public Use
  Company Number: US-PFIZER INC-2012113741

PATIENT
  Sex: Female
  Weight: 83.9 kg

DRUGS (8)
  1. BENICAR [Concomitant]
     Indication: HYPERTENSION
     Dosage: ^40/12.5 MG^ DAILY
  2. LYRICA [Suspect]
     Indication: FIBROMYALGIA
     Dosage: 50 MG, 2X/DAY
     Route: 048
     Dates: start: 20120401
  3. LYRICA [Suspect]
     Dosage: 75 MG, 2X/DAY
     Route: 048
     Dates: start: 20120408
  4. IRON [Concomitant]
     Dosage: UNK
  5. PRAMIPEXOLE DIHYDROCHLORIDE [Concomitant]
     Indication: RESTLESS LEGS SYNDROME
     Dosage: 0.25 MG, 5X/DAY
  6. ALLOPURINOL [Concomitant]
     Indication: GOUT
     Dosage: 100 MG, 2X/DAY
  7. VITAMIN C [Concomitant]
     Dosage: UNK
  8. CITALOPRAM [Concomitant]
     Indication: DEPRESSION
     Dosage: 10 MG, DAILY

REACTIONS (6)
  - EYE DISORDER [None]
  - NAUSEA [None]
  - HEAD DISCOMFORT [None]
  - ABDOMINAL DISCOMFORT [None]
  - VERTIGO [None]
  - DIZZINESS [None]
